FAERS Safety Report 12084714 (Version 4)
Quarter: 2016Q2

REPORT INFORMATION
  Report Type: Spontaneous
  Country: BE (occurrence: BE)
  Receive Date: 20160217
  Receipt Date: 20160406
  Transmission Date: 20160815
  Serious: Yes (Other)
  Sender: FDA-Public Use
  Company Number: BE-TEVA-635897ISR

PATIENT
  Age: 41 Year
  Sex: Female

DRUGS (1)
  1. MOXIFLOXACIN. [Suspect]
     Active Substance: MOXIFLOXACIN
     Indication: BRONCHITIS
     Route: 048

REACTIONS (2)
  - Photophobia [Not Recovered/Not Resolved]
  - Iris transillumination defect [Not Recovered/Not Resolved]
